FAERS Safety Report 5479332-4 (Version None)
Quarter: 2007Q4

REPORT INFORMATION
  Report Type: 
  Country: None (occurrence: None)
  Receive Date: 20071003
  Receipt Date: 20071003
  Transmission Date: 20080405
  Serious: No
  Sender: FDA-Public Use
  Company Number: None

PATIENT
  Age: 54 Year
  Sex: Female

DRUGS (1)
  1. ACTONEL [Suspect]
     Dosage: 35 MG WEEKLY ORAL
     Route: 048

REACTIONS (8)
  - CARPAL TUNNEL SYNDROME [None]
  - CHILLS [None]
  - GAIT DISTURBANCE [None]
  - HYPERHIDROSIS [None]
  - MOVEMENT DISORDER [None]
  - NAUSEA [None]
  - PAIN [None]
  - PYREXIA [None]
